FAERS Safety Report 6678806-8 (Version None)
Quarter: 2010Q2

REPORT INFORMATION
  Report Type: 
  Country: None (occurrence: None)
  Receive Date: 20100412
  Receipt Date: 20100412
  Transmission Date: 20101027
  Serious: Yes (Hospitalization)
  Sender: FDA-Public Use
  Company Number: None

PATIENT
  Age: 50 Year
  Sex: Male
  Weight: 98.2 kg

DRUGS (1)
  1. KETOROLAC TROMETHAMINE [Suspect]
     Indication: PAIN
     Dosage: 60 MG ONCE IM
     Route: 030
     Dates: start: 20100409, end: 20100409

REACTIONS (9)
  - BLOOD PRESSURE INCREASED [None]
  - CHEST PAIN [None]
  - DYSPNOEA [None]
  - HEAD TITUBATION [None]
  - PRURITUS [None]
  - RESPIRATORY DISORDER [None]
  - SKIN BURNING SENSATION [None]
  - THROAT TIGHTNESS [None]
  - TREMOR [None]
